FAERS Safety Report 5837575-1 (Version None)
Quarter: 2008Q3

REPORT INFORMATION
  Report Type: 
  Country: None (occurrence: None)
  Receive Date: 20080807
  Receipt Date: 20080731
  Transmission Date: 20090109
  Serious: Yes (Other)
  Sender: FDA-Public Use
  Company Number: JP-PFIZER INC-2008064551

PATIENT
  Age: 66 Year
  Sex: Male

DRUGS (4)
  1. ATARAX [Suspect]
     Indication: SEDATIVE THERAPY
     Route: 042
     Dates: start: 20080708, end: 20080708
  2. ANTIHYPERTENSIVES [Suspect]
     Route: 048
  3. DRUG USED IN DIABETES [Suspect]
     Indication: DIABETES MELLITUS
     Route: 048
  4. WARFARIN SODIUM [Suspect]
     Route: 048

REACTIONS (1)
  - PURPURA [None]
